FAERS Safety Report 8294229 (Version 9)
Quarter: 2013Q2

REPORT INFORMATION
  Report Type: Spontaneous
  Country: US (occurrence: US)
  Receive Date: 20111216
  Receipt Date: 20130612
  Transmission Date: 20140414
  Serious: Yes (Death, Hospitalization)
  Sender: FDA-Public Use
  Company Number: US-B.I. PHARMACEUTICALS,INC./RIDGEFIELD-2011-BP-28158BP

PATIENT
  Age: 79 Year
  Sex: Female
  Weight: 81.65 kg

DRUGS (16)
  1. PRADAXA [Suspect]
     Indication: ATRIAL FIBRILLATION
     Dosage: 300 MG
     Route: 048
     Dates: start: 20101110
  2. PRADAXA [Suspect]
     Indication: CORONARY ARTERY DISEASE
  3. PRADAXA [Suspect]
     Indication: CARDIAC FAILURE CONGESTIVE
  4. PRADAXA [Suspect]
     Indication: CARDIAC PACEMAKER INSERTION
  5. LEVOTHYROXINE [Concomitant]
  6. LASIX [Concomitant]
  7. SPIRONOLACTONE [Concomitant]
  8. PROZAC [Concomitant]
  9. PRAVASTATIN [Concomitant]
  10. BUDESONIDE [Concomitant]
  11. NEXIUM [Concomitant]
     Dates: start: 20110225
  12. TRAMADOL/APAP [Concomitant]
     Dates: start: 20110304
  13. DOXYCYCLINE [Concomitant]
     Dates: start: 20110629
  14. AZITHROMYCIN [Concomitant]
     Dates: start: 20110801
  15. CIPROFLOXACIN [Concomitant]
     Dates: start: 20111107
  16. COMBIVENT [Concomitant]
     Dates: start: 20111122

REACTIONS (5)
  - Hypovolaemia [Fatal]
  - Exsanguination [Fatal]
  - Bleeding varicose vein [Fatal]
  - Hypotension [Fatal]
  - Creatinine renal clearance decreased [Unknown]
